FAERS Safety Report 19738399 (Version 5)
Quarter: 2022Q3

REPORT INFORMATION
  Report Type: Spontaneous
  Country: US (occurrence: US)
  Receive Date: 20210824
  Receipt Date: 20220716
  Transmission Date: 20221027
  Serious: No
  Sender: FDA-Public Use
  Company Number: US-BRISTOL-MYERS SQUIBB COMPANY-BMS-2021-083948

PATIENT
  Age: 46 Year
  Sex: Female

DRUGS (1)
  1. ORENCIA [Suspect]
     Active Substance: ABATACEPT
     Indication: Rheumatoid arthritis
     Route: 058
     Dates: start: 20210729

REACTIONS (5)
  - Headache [Recovering/Resolving]
  - Joint swelling [Unknown]
  - Arthralgia [Unknown]
  - Drug ineffective [Unknown]
  - Mass [Unknown]

NARRATIVE: CASE EVENT DATE: 20210818
